FAERS Safety Report 5639485-1 (Version None)
Quarter: 2008Q1

REPORT INFORMATION
  Report Type: 
  Country: None (occurrence: None)
  Receive Date: 20080131
  Receipt Date: 20071221
  Transmission Date: 20080703
  Serious: Yes (Other)
  Sender: FDA-Public Use
  Company Number: 163-21880-07121361

PATIENT
  Age: 68 Year
  Sex: Male

DRUGS (9)
  1. REVLIMID [Suspect]
     Indication: MULTIPLE MYELOMA
     Dosage: 10 MG, 1 IN 1 D, ORAL
     Route: 048
     Dates: start: 20070209
  2. DEXAMETHASONE TAB [Concomitant]
  3. COUMADIN [Concomitant]
  4. PENICILLIN [Concomitant]
  5. ACYCLOVIR [Concomitant]
  6. LEVOTHYROXINE SODIUM [Concomitant]
  7. METHADONE HCL [Concomitant]
  8. NORTRIPTYLINE HCL [Concomitant]
  9. MULTIVITAMIN [Concomitant]

REACTIONS (1)
  - NEOPLASM PROGRESSION [None]
